FAERS Safety Report 4575194-8 (Version None)
Quarter: 2005Q1

REPORT INFORMATION
  Report Type: 
  Country: None (occurrence: None)
  Receive Date: 20050208
  Receipt Date: 20041105
  Transmission Date: 20050727
  Serious: Yes (Hospitalization, Other)
  Sender: FDA-Public Use
  Company Number: DE-MERCK-0411DEU00116

PATIENT
  Age: 72 Year
  Sex: Male

DRUGS (4)
  1. VIOXX [Suspect]
     Route: 048
     Dates: end: 20031101
  2. ASPIRIN [Concomitant]
     Route: 048
  3. GLYBURIDE [Concomitant]
     Route: 048
  4. [THERAPY UNSPECIFIED] [Concomitant]
     Route: 065

REACTIONS (4)
  - ARRHYTHMIA [None]
  - CAROTID ARTERY STENOSIS [None]
  - NERVOUS SYSTEM DISORDER [None]
  - SYNCOPE [None]
